FAERS Safety Report 4588160-3 (Version None)
Quarter: 2005Q1

REPORT INFORMATION
  Report Type: 
  Country: None (occurrence: None)
  Receive Date: 20050221
  Receipt Date: 20050214
  Transmission Date: 20050727
  Serious: Yes (Life-Threatening, Hospitalization)
  Sender: FDA-Public Use
  Company Number: PHBS2005TH02263

PATIENT
  Age: 49 Year
  Sex: Male
  Weight: 61 kg

DRUGS (1)
  1. GLEEVEC [Suspect]
     Indication: CHRONIC MYELOID LEUKAEMIA
     Dosage: 400 MG/DAY
     Route: 048
     Dates: start: 20041214, end: 20041216

REACTIONS (7)
  - BLOOD CREATINE PHOSPHOKINASE INCREASED [None]
  - BLOOD LACTATE DEHYDROGENASE INCREASED [None]
  - HYPERKALAEMIA [None]
  - MUSCLE ENZYME INCREASED [None]
  - MUSCULAR WEAKNESS [None]
  - MYALGIA [None]
  - MYOPATHY TOXIC [None]
